FAERS Safety Report 5176823-0 (Version None)
Quarter: 2006Q4

REPORT INFORMATION
  Report Type: 
  Country: None (occurrence: None)
  Receive Date: 20061207
  Receipt Date: 20061127
  Transmission Date: 20070319
  Serious: Yes (Other)
  Sender: FDA-Public Use
  Company Number: 2006BI015677

PATIENT
  Age: 30 Year
  Sex: Female

DRUGS (5)
  1. AVONEX [Suspect]
     Indication: MULTIPLE SCLEROSIS
     Dosage: 30 UG QW IM
     Route: 030
     Dates: start: 19960701, end: 20030801
  2. AVONEX [Suspect]
     Indication: MULTIPLE SCLEROSIS
     Dosage: 30 UG QW IM
     Route: 030
     Dates: start: 20030801
  3. DILAUDID [Concomitant]
  4. ZOVIA 1/35E-21 [Concomitant]
  5. ELAVIL [Concomitant]

REACTIONS (3)
  - ANTIMITOCHONDRIAL ANTIBODY POSITIVE [None]
  - BILIARY CIRRHOSIS [None]
  - HEPATIC STEATOSIS [None]
